FAERS Safety Report 14585999 (Version 3)
Quarter: 2024Q4

REPORT INFORMATION
  Report Type: Spontaneous
  Country: BE (occurrence: BE)
  Receive Date: 20180301
  Receipt Date: 20241218
  Transmission Date: 20250115
  Serious: Yes (Other)
  Sender: AMGEN
  Company Number: BE-BAXTER-2018BAX004933

PATIENT
  Sex: Female

DRUGS (19)
  1. XGEVA [Suspect]
     Active Substance: DENOSUMAB
     Indication: Breast cancer metastatic
     Dosage: UNK ADDITIONAL INFO: FASLODEX WITH XGEVA (BALLET THERAPY)
     Route: 065
     Dates: start: 201210
  2. XGEVA [Suspect]
     Active Substance: DENOSUMAB
     Dosage: UNK ADDITIONAL INFO: FASLODEX WITH XGEVA (BALLET THERAPY)
     Route: 065
     Dates: start: 201403
  3. IBRANCE [Suspect]
     Active Substance: PALBOCICLIB
     Indication: Breast cancer metastatic
     Dosage: 125 MILLIGRAM, CYCLICAL
     Route: 065
  4. CYCLOPHOSPHAMIDE [Suspect]
     Active Substance: CYCLOPHOSPHAMIDE
     Indication: Breast cancer metastatic
     Dosage: 6 CYCLES OF CMF THERAPY, CYCLICAL
     Route: 065
     Dates: start: 201707
  5. FLUOROURACIL [Suspect]
     Active Substance: FLUOROURACIL
     Indication: Breast cancer metastatic
     Dosage: 6 CYCLE OF CMF
     Route: 065
     Dates: start: 201707
  6. FLUOROURACIL [Suspect]
     Active Substance: FLUOROURACIL
     Dosage: 6 CYCLE OF CMF
     Route: 065
     Dates: start: 201710
  7. METHOTREXATE [Suspect]
     Active Substance: METHOTREXATE
     Indication: Breast cancer metastatic
     Dosage: 6 CYCLES OF CMF THERAPY
     Route: 065
     Dates: start: 201707
  8. XELODA [Suspect]
     Active Substance: CAPECITABINE
     Indication: Breast cancer metastatic
     Dosage: 1000 MILLIGRAM/SQ. METER
     Route: 065
  9. DOXORUBICIN HYDROCHLORIDE [Suspect]
     Active Substance: DOXORUBICIN HYDROCHLORIDE
     Indication: Breast cancer metastatic
     Dosage: 6 CYCLE OF CMF THERAPY ADDITIONAL INFO: ADDITIONAL INFO: PEGYLATED LIPOSOMAL DOXORUBICIN HYDROCHLORI
     Route: 065
     Dates: start: 201707
  10. EVEROLIMUS [Suspect]
     Active Substance: EVEROLIMUS
     Indication: Breast cancer metastatic
     Dosage: BALLET-STUDY
     Route: 065
     Dates: start: 201301
  11. FEMARA [Suspect]
     Active Substance: LETROZOLE
     Indication: Breast cancer metastatic
     Dosage: UNK
     Route: 065
  12. NOLVADEX [Suspect]
     Active Substance: TAMOXIFEN CITRATE
     Indication: Breast cancer metastatic
     Dosage: UNK
     Route: 065
     Dates: start: 200310, end: 201809
  13. NOLVADEX [Suspect]
     Active Substance: TAMOXIFEN CITRATE
     Dosage: UNK
     Route: 065
     Dates: start: 200310, end: 201809
  14. TAXOL [Suspect]
     Active Substance: PACLITAXEL
     Indication: Breast cancer metastatic
     Dosage: 1 DOSAGE FORM, QWK
     Route: 065
     Dates: start: 201405, end: 201409
  15. FASLODEX [Suspect]
     Active Substance: FULVESTRANT
     Indication: Breast cancer metastatic
     Dosage: UNK ADDITIONAL INFO: FASLODEX WITH XGEVA (BALLET THERAPY)
     Route: 065
     Dates: start: 201210
  16. FASLODEX [Suspect]
     Active Substance: FULVESTRANT
     Dosage: UNK ADDITIONAL INFO: FASLODEX WITH XGEVA (BALLET THERAPY)
     Route: 065
     Dates: start: 201403
  17. NAVELBINE [Suspect]
     Active Substance: VINORELBINE TARTRATE
     Indication: Breast cancer metastatic
     Dosage: UNK
     Route: 065
     Dates: start: 201705, end: 201707
  18. AROMASIN [Suspect]
     Active Substance: EXEMESTANE
     Indication: Breast cancer metastatic
     Dosage: UNK ADDITIONAL INFO: EVEROLIMUS + AROMASIN
     Route: 065
     Dates: start: 201301
  19. ERIBULIN [Suspect]
     Active Substance: ERIBULIN
     Indication: Breast cancer metastatic
     Dosage: UNK
     Route: 065
     Dates: start: 201710

REACTIONS (4)
  - Disease progression [Unknown]
  - Neutropenia [Unknown]
  - Malignant neoplasm progression [Not Recovered/Not Resolved]
  - Disease progression [Not Recovered/Not Resolved]

NARRATIVE: CASE EVENT DATE: 20170701
